FAERS Safety Report 16784573 (Version 1)
Quarter: 2019Q3

REPORT INFORMATION
  Report Type: Spontaneous
  Country: IT (occurrence: IT)
  Receive Date: 20190909
  Receipt Date: 20190909
  Transmission Date: 20191005
  Serious: Yes (Other)
  Sender: FDA-Public Use
  Company Number: IT-TEVA-2019-IT-1103420

PATIENT
  Age: 47 Year
  Sex: Female

DRUGS (3)
  1. AULIN [Concomitant]
     Active Substance: NIMESULIDE
     Indication: EAR PAIN
     Dosage: 1 DOSAGE FORM
     Route: 048
  2. LEVOFLOXACIN. [Suspect]
     Active Substance: LEVOFLOXACIN
     Indication: EAR INFECTION
     Dosage: 500MG
     Route: 048
     Dates: start: 20180918, end: 20180918
  3. CEFIXORAL [Suspect]
     Active Substance: CEFIXIME
     Indication: EAR INFECTION
     Dosage: 400MG
     Route: 065

REACTIONS (4)
  - Eyelid oedema [Recovered/Resolved]
  - Paraesthesia oral [Recovered/Resolved]
  - Dysphonia [Recovered/Resolved]
  - Circumoral oedema [Recovered/Resolved]

NARRATIVE: CASE EVENT DATE: 20180918
